FAERS Safety Report 9967352 (Version 1)
Quarter: 2014Q1

REPORT INFORMATION
  Report Type: Spontaneous
  Country: DE (occurrence: DE)
  Receive Date: 20140305
  Receipt Date: 20140305
  Transmission Date: 20141002
  Serious: Yes (Congenital Anomaly)
  Sender: FDA-Public Use
  Company Number: DE-MYLANLABS-2014S1003825

PATIENT
  Age: 1 Day
  Sex: Male
  Weight: 2.08 kg

DRUGS (4)
  1. SERTRALINE [Suspect]
     Indication: DEPRESSION
     Dosage: 100 [MG/D ]
     Route: 064
     Dates: start: 20120407, end: 20121206
  2. LAMOTRIGIN [Suspect]
     Indication: BIPOLAR DISORDER
     Dosage: 200 [MG/D ]/ HIGHER DOSE OF 200 MG/D SINCE WEEK 15
     Route: 064
     Dates: start: 20120407, end: 20121206
  3. L-THYROXIN HENNING [Concomitant]
     Indication: AUTOIMMUNE THYROIDITIS
     Dosage: 75 [?G/D ]
     Route: 064
     Dates: start: 20120407, end: 20121206
  4. CORDES BPO [Concomitant]
     Indication: ACNE
     Route: 064
     Dates: start: 20120407, end: 20120518

REACTIONS (2)
  - Polydactyly [Recovered/Resolved]
  - Exposure during pregnancy [Unknown]
